FAERS Safety Report 8974127 (Version 1)
Quarter: 2012Q4

REPORT INFORMATION
  Report Type: Spontaneous
  Country: EC (occurrence: None)
  Receive Date: 20121211
  Receipt Date: 20121211
  Transmission Date: 20130627
  Serious: Yes (Death)
  Sender: FDA-Public Use
  Company Number: ENTC2012-0550

PATIENT
  Age: 77 Year
  Sex: Female

DRUGS (1)
  1. STALEVO [Suspect]
     Dosage: 100/25/200 mg Oral
     Dates: start: 20100506

REACTIONS (1)
  - Death [None]
